FAERS Safety Report 21364566 (Version 1)
Quarter: 2022Q3

REPORT INFORMATION
  Report Type: Spontaneous
  Country: CA (occurrence: CA)
  Receive Date: 20220922
  Receipt Date: 20220922
  Transmission Date: 20221027
  Serious: Yes (Other)
  Sender: FDA-Public Use
  Company Number: CA-SAMSUNG BIOEPIS-SB-2022-23414

PATIENT
  Age: 34 Year
  Sex: Female

DRUGS (1)
  1. INFLIXIMAB [Suspect]
     Active Substance: INFLIXIMAB
     Indication: Psoriatic arthropathy
     Route: 042

REACTIONS (7)
  - COVID-19 [Unknown]
  - Contusion [Unknown]
  - Ear infection [Unknown]
  - Fall [Unknown]
  - Rhinitis [Unknown]
  - Wound [Unknown]
  - Off label use [Unknown]
